FAERS Safety Report 18928955 (Version 1)
Quarter: 2021Q1

REPORT INFORMATION
  Report Type: Spontaneous
  Country: GB (occurrence: GB)
  Receive Date: 20210223
  Receipt Date: 20210223
  Transmission Date: 20210420
  Serious: Yes (Hospitalization, Disabling)
  Sender: FDA-Public Use
  Company Number: GB-TEVA-2021-GB-1880412

PATIENT
  Age: 30 Year
  Sex: Female
  Weight: 49 kg

DRUGS (2)
  1. COCODAMOL [Suspect]
     Active Substance: ACETAMINOPHEN\CODEINE PHOSPHATE
     Route: 065
  2. PARACETAMOL [Suspect]
     Active Substance: ACETAMINOPHEN
     Route: 065

REACTIONS (8)
  - Pyrexia [Unknown]
  - Anxiety [Unknown]
  - Myalgia [Not Recovered/Not Resolved]
  - Vaccination site joint pain [Not Recovered/Not Resolved]
  - Chills [Unknown]
  - Arthralgia [Unknown]
  - Dizziness [Unknown]
  - Back pain [Not Recovered/Not Resolved]

NARRATIVE: CASE EVENT DATE: 20210129
